FAERS Safety Report 9708484 (Version 1)
Quarter: 2013Q4

REPORT INFORMATION
  Report Type: Spontaneous
  Country: US (occurrence: US)
  Receive Date: 20131125
  Receipt Date: 20131125
  Transmission Date: 20140711
  Serious: No
  Sender: FDA-Public Use
  Company Number: US-PFIZER INC-2013336212

PATIENT
  Age: 25 Year
  Sex: Female
  Weight: 48.53 kg

DRUGS (6)
  1. XANAX [Suspect]
     Indication: PROGESTERONE DECREASED
     Dosage: 0.25 MG, AS NEEDED
     Dates: start: 2011, end: 2011
  2. XANAX [Suspect]
     Indication: BLOOD OESTROGEN INCREASED
  3. ORTHO TRI-CYCLEN [Suspect]
     Indication: PROGESTERONE DECREASED
     Dosage: UNK, 1X/DAY
     Dates: start: 2007, end: 2008
  4. ORTHO TRI-CYCLEN [Suspect]
     Indication: BLOOD OESTROGEN INCREASED
  5. ADDERALL [Suspect]
     Indication: PROGESTERONE DECREASED
     Dosage: UNK
  6. ADDERALL [Suspect]
     Indication: BLOOD OESTROGEN INCREASED

REACTIONS (6)
  - Feeling abnormal [Unknown]
  - Depressed mood [Unknown]
  - Anxiety [Unknown]
  - Malaise [Unknown]
  - Drug ineffective [Unknown]
  - Off label use [Unknown]
